FAERS Safety Report 4279256-4 (Version None)
Quarter: 2004Q1

REPORT INFORMATION
  Report Type: 
  Country: None (occurrence: None)
  Receive Date: 20040126
  Receipt Date: 20040126
  Transmission Date: 20041129
  Serious: Yes (Other)
  Sender: FDA-Public Use
  Company Number: None

PATIENT
  Age: 81 Year
  Sex: Male
  Weight: 74.8 kg

DRUGS (6)
  1. OXYBUTYNIN [Suspect]
  2. FELODIPINE [Concomitant]
  3. DICLOFENAC SODIUM [Concomitant]
  4. LOVASTATIN [Concomitant]
  5. SODIUM FLUORIDE [Concomitant]
  6. FINASTERIDE [Concomitant]

REACTIONS (1)
  - DRY MOUTH [None]
